FAERS Safety Report 7072774-5 (Version None)
Quarter: 2010Q4

REPORT INFORMATION
  Report Type: 
  Country: None (occurrence: None)
  Receive Date: 20101029
  Receipt Date: 20100311
  Transmission Date: 20110411
  Serious: No
  Sender: FDA-Public Use
  Company Number: A0849706A

PATIENT
  Age: 81 Year
  Sex: Male

DRUGS (2)
  1. ADVAIR DISKUS 100/50 [Suspect]
     Route: 055
     Dates: start: 19850101
  2. UNSPECIFIED INHALER [Concomitant]

REACTIONS (1)
  - STOMATITIS [None]
